FAERS Safety Report 25548805 (Version 1)
Quarter: 2025Q3

REPORT INFORMATION
  Report Type: Other
  Country: EU (occurrence: EU)
  Receive Date: 20250714
  Receipt Date: 20250714
  Transmission Date: 20251020
  Serious: Yes (Other)
  Sender: ANI
  Company Number: EU-ANIPHARMA-023545

PATIENT
  Age: 32 Year
  Sex: Female

DRUGS (7)
  1. CYCLOPHOSPHAMIDE [Suspect]
     Active Substance: CYCLOPHOSPHAMIDE
     Indication: Lymphodepletion
  2. AZATHIOPRINE [Concomitant]
     Active Substance: AZATHIOPRINE
     Indication: Systemic scleroderma
  3. HYDROXYCHLOROQUINE [Concomitant]
     Active Substance: HYDROXYCHLOROQUINE
     Indication: Systemic scleroderma
  4. SILDENAFIL [Concomitant]
     Active Substance: SILDENAFIL
     Indication: Systemic scleroderma
  5. NIFEDIPINE [Concomitant]
     Active Substance: NIFEDIPINE
     Indication: Systemic scleroderma
  6. ILOPROST [Concomitant]
     Active Substance: ILOPROST
     Indication: Systemic scleroderma
  7. FLUDARABINE [Concomitant]
     Active Substance: FLUDARABINE PHOSPHATE
     Indication: Lymphodepletion

REACTIONS (1)
  - Cytokine release syndrome [Recovered/Resolved]
